FAERS Safety Report 4714341-1 (Version None)
Quarter: 2005Q3

REPORT INFORMATION
  Report Type: 
  Country: None (occurrence: None)
  Receive Date: 20050713
  Receipt Date: 20050713
  Transmission Date: 20060218
  Serious: Yes (Hospitalization)
  Sender: FDA-Public Use
  Company Number: None

PATIENT
  Sex: Female
  Weight: 79.8331 kg

DRUGS (12)
  1. TAXOTERE [Suspect]
     Indication: NON-SMALL CELL LUNG CANCER
     Dosage: 40 MG /M2 D1, D8, Q 3 WKS
     Dates: start: 20050524, end: 20050705
  2. GEMCITABINE IV [Suspect]
     Indication: NON-SMALL CELL LUNG CANCER
     Dosage: 600 MG/M2 D1, D8 Q 3 WKS
     Dates: start: 20050524, end: 20050705
  3. ARNESP [Concomitant]
  4. ZOMETA [Concomitant]
  5. NORVASC [Concomitant]
  6. PERCOCET [Concomitant]
  7. XANAX [Concomitant]
  8. NASONEX [Concomitant]
  9. SENNA [Concomitant]
  10. COMPAZINE [Concomitant]
  11. ACIPHEX [Concomitant]
  12. COLACE [Concomitant]

REACTIONS (3)
  - DEHYDRATION [None]
  - FALL [None]
  - HAEMOGLOBIN DECREASED [None]
